FAERS Safety Report 23939058 (Version 2)
Quarter: 2024Q3

REPORT INFORMATION
  Report Type: Spontaneous
  Country: RO (occurrence: RO)
  Receive Date: 20240604
  Receipt Date: 20240701
  Transmission Date: 20241016
  Serious: Yes (Other)
  Sender: SANDOZ
  Company Number: RO-SANDOZ-SDZ2024RO053473

PATIENT
  Sex: Male
  Weight: 60 kg

DRUGS (3)
  1. HYRIMOZ [Suspect]
     Active Substance: ADALIMUMAB-ADAZ
     Indication: Palindromic rheumatism
     Dosage: 40 MG, Q2W
     Route: 058
     Dates: start: 20231127, end: 20240404
  2. LEFLUNOMIDE [Suspect]
     Active Substance: LEFLUNOMIDE
     Indication: Product used for unknown indication
     Dosage: 10 MG
     Route: 048
  3. SULFASALAZINE [Suspect]
     Active Substance: SULFASALAZINE
     Indication: Product used for unknown indication
     Dosage: 3000 MG
     Route: 048

REACTIONS (1)
  - Epiglottic cancer [Unknown]

NARRATIVE: CASE EVENT DATE: 20240415
